FAERS Safety Report 8853673 (Version 1)
Quarter: 2012Q4

REPORT INFORMATION
  Report Type: 
  Country: US (occurrence: US)
  Receive Date: 20121023
  Receipt Date: 20121023
  Transmission Date: 20130627
  Serious: No
  Sender: FDA-Public Use
  Company Number: US-009507513-1210USA002346

PATIENT
  Sex: Female

DRUGS (1)
  1. NUVARING [Suspect]
     Indication: ENDOMETRIOSIS
     Dosage: 1 DF, q3w  1 ring for 3 weeks
     Route: 067

REACTIONS (1)
  - Inappropriate schedule of drug administration [Unknown]
